FAERS Safety Report 9183983 (Version 1)
Quarter: 2013Q1

REPORT INFORMATION
  Report Type: Spontaneous
  Country: US (occurrence: US)
  Receive Date: 20130322
  Receipt Date: 20130322
  Transmission Date: 20140127
  Serious: No
  Sender: FDA-Public Use
  Company Number: US-BRISTOL-MYERS SQUIBB COMPANY-16686339

PATIENT
  Age: 59 Year
  Sex: Male
  Weight: 104.31 kg

DRUGS (2)
  1. ERBITUX [Suspect]
     Indication: COLON CANCER
     Dosage: INITIALLY EVERY OTHER WEEK. SCHEDULED 20JUN2012
     Dates: start: 2012
  2. CAMPTOSAR [Concomitant]

REACTIONS (2)
  - Fatigue [Unknown]
  - Rash pruritic [Unknown]
